FAERS Safety Report 13551478 (Version 1)
Quarter: 2017Q2

REPORT INFORMATION
  Report Type: Spontaneous
  Country: US (occurrence: US)
  Receive Date: 20170516
  Receipt Date: 20170516
  Transmission Date: 20170830
  Serious: No
  Sender: FDA-Public Use
  Company Number: US-LNK INTERNATIONAL, INC.-2020833

PATIENT
  Age: 73 Year
  Sex: Female

DRUGS (2)
  1. LISINOPRIL. [Concomitant]
     Active Substance: LISINOPRIL
  2. IBUPROFEN. [Suspect]
     Active Substance: IBUPROFEN

REACTIONS (1)
  - Skin discolouration [None]
